FAERS Safety Report 12131529 (Version 1)
Quarter: 2016Q1

REPORT INFORMATION
  Report Type: Spontaneous
  Country: GB (occurrence: GB)
  Receive Date: 20160301
  Receipt Date: 20160301
  Transmission Date: 20160526
  Serious: Yes (Hospitalization, Other)
  Sender: FDA-Public Use
  Company Number: GB-PFIZER INC-2016117932

PATIENT
  Age: 62 Year
  Sex: Female

DRUGS (4)
  1. LANSOPRAZOLE. [Concomitant]
     Active Substance: LANSOPRAZOLE
     Dosage: 30 MG, 1X/DAY
  2. LITHIUM CARBONATE. [Concomitant]
     Active Substance: LITHIUM CARBONATE
     Dosage: 600MG DAILY DOSE AT NIGHT
  3. QUETIAPINE [Concomitant]
     Active Substance: QUETIAPINE
     Dosage: 300 MG, 1X/DAY
  4. IBUPROFEN. [Suspect]
     Active Substance: IBUPROFEN
     Dosage: 200 MG THREE TIMES A DAY AS NECESSARY
     Route: 048
     Dates: end: 20160210

REACTIONS (4)
  - Melaena [Unknown]
  - Dyspnoea exertional [Unknown]
  - Gastric ulcer [Recovering/Resolving]
  - Fatigue [Unknown]
